FAERS Safety Report 11908017 (Version 1)
Quarter: 2016Q1

REPORT INFORMATION
  Report Type: Report from Study
  Country: CA (occurrence: CA)
  Receive Date: 20160111
  Receipt Date: 20160111
  Transmission Date: 20160526
  Serious: Yes (Hospitalization)
  Sender: FDA-Public Use
  Company Number: CA-JNJFOC-20160104635

PATIENT
  Sex: Female

DRUGS (1)
  1. REMICADE [Suspect]
     Active Substance: INFLIXIMAB
     Indication: CROHN^S DISEASE
     Route: 042
     Dates: start: 20151106

REACTIONS (5)
  - Frequent bowel movements [Unknown]
  - Malaise [Not Recovered/Not Resolved]
  - Pain [Unknown]
  - Dizziness [Unknown]
  - Abdominal pain [Unknown]

NARRATIVE: CASE EVENT DATE: 2015
